FAERS Safety Report 21204804 (Version 1)
Quarter: 2022Q3

REPORT INFORMATION
  Report Type: Report from Study
  Country: CA (occurrence: CA)
  Receive Date: 20220812
  Receipt Date: 20220812
  Transmission Date: 20221027
  Serious: Yes (Other)
  Sender: FDA-Public Use
  Company Number: CA-BAXTER-2022BAX016108

PATIENT
  Age: 73 Year
  Sex: Female

DRUGS (1)
  1. CEFAZOLIN [Suspect]
     Active Substance: CEFAZOLIN
     Indication: Allergy test
     Dosage: UNK
     Route: 042

REACTIONS (2)
  - Angioedema [Recovered/Resolved]
  - Tongue oedema [Recovered/Resolved]
